FAERS Safety Report 23784754 (Version 1)
Quarter: 2024Q2

REPORT INFORMATION
  Report Type: Report from Study
  Country: DE (occurrence: DE)
  Receive Date: 20240425
  Receipt Date: 20240425
  Transmission Date: 20240715
  Serious: Yes (Hospitalization, Other)
  Sender: FDA-Public Use
  Company Number: DE-UCBSA-2023048669

PATIENT
  Sex: Female

DRUGS (2)
  1. METHOTREXATE [Suspect]
     Active Substance: METHOTREXATE
     Indication: Product used for unknown indication
     Dosage: 15 MILLIGRAM, WEEKLY (QW)
     Route: 065
     Dates: end: 202312
  2. CERTOLIZUMAB PEGOL [Suspect]
     Active Substance: CERTOLIZUMAB PEGOL
     Indication: Product used for unknown indication
     Dosage: 200 MILLIGRAM, BIWEEKLY (SOLUTION FOR INJECTION IN PRE-FILLED SYRINGE  )
     Route: 065

REACTIONS (6)
  - Somatic symptom disorder [Unknown]
  - Rheumatoid arthritis [Recovered/Resolved]
  - Depression [Unknown]
  - Fatigue [Unknown]
  - Upper respiratory tract infection [Recovered/Resolved]
  - Oral herpes [Recovered/Resolved]

NARRATIVE: CASE EVENT DATE: 20221201
